FAERS Safety Report 4974078-0 (Version None)
Quarter: 2006Q2

REPORT INFORMATION
  Report Type: 
  Country: None (occurrence: None)
  Receive Date: 20060417
  Receipt Date: 20060406
  Transmission Date: 20061013
  Serious: Yes (Death, Congenital Anomaly)
  Sender: FDA-Public Use
  Company Number: FR-GLAXOSMITHKLINE-B0419795B

PATIENT
  Age: 1 Day

DRUGS (4)
  1. PAROXETINE HYDROCHLORIDE [Suspect]
     Dates: end: 20051201
  2. DOMPERIDONE [Concomitant]
     Dates: start: 20051228
  3. LOMEXIN [Concomitant]
     Dates: end: 20051228
  4. TRANQUITAL [Concomitant]

REACTIONS (3)
  - CONGENITAL CENTRAL NERVOUS SYSTEM ANOMALY [None]
  - DRUG EXPOSURE DURING PREGNANCY [None]
  - SKULL MALFORMATION [None]
